FAERS Safety Report 9923713 (Version 1)
Quarter: 2014Q1

REPORT INFORMATION
  Report Type: Spontaneous
  Country: US (occurrence: US)
  Receive Date: 20140225
  Receipt Date: 20140225
  Transmission Date: 20141002
  Serious: No
  Sender: FDA-Public Use
  Company Number: US-AMGEN-USASP2014000627

PATIENT
  Age: 45 Year
  Sex: Female

DRUGS (2)
  1. ENBREL [Suspect]
     Indication: PRODUCT USED FOR UNKNOWN INDICATION
     Dosage: 50 MG, QWK
     Route: 058
     Dates: start: 201201
  2. XELJANZ [Concomitant]
     Dosage: UNK
     Dates: start: 201311

REACTIONS (4)
  - Insomnia [Unknown]
  - Weight increased [Unknown]
  - Night sweats [Unknown]
  - Sleep disorder [Unknown]
